FAERS Safety Report 17025445 (Version 3)
Quarter: 2020Q4

REPORT INFORMATION
  Report Type: Spontaneous
  Country: US (occurrence: US)
  Receive Date: 20191113
  Receipt Date: 20201120
  Transmission Date: 20210113
  Serious: Yes (Life-Threatening, Hospitalization, Disabling)
  Sender: FDA-Public Use
  Company Number: US-CELGENEUS-USA-20191103425

PATIENT
  Age: 49 Year
  Sex: Female

DRUGS (44)
  1. METFORMIN [Concomitant]
     Active Substance: METFORMIN HYDROCHLORIDE
     Indication: DIABETES MELLITUS
     Dosage: 1000 MILLIGRAM
     Route: 048
     Dates: start: 20070124
  2. LANTUS [Concomitant]
     Active Substance: INSULIN GLARGINE
     Dosage: 20 IU (INTERNATIONAL UNIT)
     Route: 058
     Dates: start: 20191026, end: 20191031
  3. ABRAXANE [Suspect]
     Active Substance: PACLITAXEL
     Indication: NON-SMALL CELL LUNG CANCER STAGE IV
     Dosage: 204 MILLIGRAM
     Route: 042
     Dates: start: 20190524, end: 20190524
  4. CARBOPLATIN. [Suspect]
     Active Substance: CARBOPLATIN
     Indication: NON-SMALL CELL LUNG CANCER STAGE IV
     Dosage: 676 MILLIGRAM
     Route: 042
     Dates: start: 20190524, end: 20190524
  5. MAGNESIUM CITRATE. [Concomitant]
     Active Substance: MAGNESIUM CITRATE
     Indication: CONSTIPATION
     Dosage: 20 MILLIGRAM
     Route: 048
     Dates: start: 20190816
  6. LANTUS [Concomitant]
     Active Substance: INSULIN GLARGINE
     Indication: DIABETES MELLITUS
     Dosage: 20 IU (INTERNATIONAL UNIT)
     Route: 058
     Dates: start: 20070524
  7. APREPITANT. [Concomitant]
     Active Substance: APREPITANT
     Indication: PROPHYLAXIS OF NAUSEA AND VOMITING
  8. ABRAXANE [Suspect]
     Active Substance: PACLITAXEL
     Dosage: 204 MILLIGRAM
     Route: 042
     Dates: start: 20190625, end: 20190625
  9. ABRAXANE [Suspect]
     Active Substance: PACLITAXEL
     Dosage: 204 MILLIGRAM
     Route: 042
     Dates: start: 20190729, end: 20190729
  10. DURVALUMAB. [Suspect]
     Active Substance: DURVALUMAB
     Indication: NON-SMALL CELL LUNG CANCER STAGE IV
     Dosage: 1500 MILLIGRAM
     Route: 042
     Dates: start: 20190524, end: 20190524
  11. PRAVASTATIN. [Concomitant]
     Active Substance: PRAVASTATIN
     Indication: BLOOD CHOLESTEROL
     Dosage: 20 MILLIGRAM
     Route: 048
     Dates: start: 20070124
  12. GABAPENTIN. [Concomitant]
     Active Substance: GABAPENTIN
     Indication: DIABETIC NEUROPATHY
     Dosage: 900 MILLIGRAM
     Route: 048
     Dates: start: 20110524
  13. GRANISETRON [Concomitant]
     Active Substance: GRANISETRON
     Indication: PROPHYLAXIS OF NAUSEA AND VOMITING
     Dosage: .3571 MILLIGRAM
     Route: 058
     Dates: start: 20190524
  14. HUMALOG [Concomitant]
     Active Substance: INSULIN LISPRO
     Indication: TYPE 2 DIABETES MELLITUS
     Dosage: 300 IU (INTERNATIONAL UNIT)
     Route: 065
     Dates: start: 20070524, end: 20191026
  15. ABRAXANE [Suspect]
     Active Substance: PACLITAXEL
     Dosage: 204 MILLIGRAM
     Route: 042
     Dates: start: 20190710, end: 20190710
  16. ABRAXANE [Suspect]
     Active Substance: PACLITAXEL
     Dosage: 204 MILLIGRAM
     Route: 042
     Dates: start: 20190830, end: 20190830
  17. OLAPARIB. [Suspect]
     Active Substance: OLAPARIB
     Indication: NON-SMALL CELL LUNG CANCER STAGE IV
     Route: 048
     Dates: start: 20121004
  18. LANTUS [Concomitant]
     Active Substance: INSULIN GLARGINE
     Dosage: 20 IU (INTERNATIONAL UNIT)
     Route: 058
     Dates: start: 20190710, end: 20191026
  19. APREPITANT. [Concomitant]
     Active Substance: APREPITANT
     Indication: PROPHYLAXIS OF NAUSEA AND VOMITING
     Dosage: 6.1905 MILLIGRAM
     Route: 042
     Dates: start: 20190524
  20. DEXAMETHASONE. [Concomitant]
     Active Substance: DEXAMETHASONE
     Indication: ALLERGY PROPHYLAXIS
  21. ABRAXANE [Suspect]
     Active Substance: PACLITAXEL
     Dosage: 204 MILLIGRAM
     Route: 042
     Dates: start: 20190531, end: 20190531
  22. ABRAXANE [Suspect]
     Active Substance: PACLITAXEL
     Dosage: 204 MILLIGRAM
     Route: 042
     Dates: start: 20190614, end: 20190614
  23. ABRAXANE [Suspect]
     Active Substance: PACLITAXEL
     Dosage: 204 MILLIGRAM
     Route: 042
     Dates: start: 20190703, end: 20190703
  24. ZOFRAN [Concomitant]
     Active Substance: ONDANSETRON HYDROCHLORIDE
     Indication: NAUSEA
     Dosage: 24 MILLIGRAM
     Route: 048
     Dates: start: 20190524
  25. ABRAXANE [Suspect]
     Active Substance: PACLITAXEL
     Dosage: 204 MILLIGRAM
     Route: 042
     Dates: start: 20190722, end: 20190722
  26. ABRAXANE [Suspect]
     Active Substance: PACLITAXEL
     Dosage: 204 MILLIGRAM
     Route: 042
     Dates: start: 20190816, end: 20190816
  27. CARBOPLATIN. [Suspect]
     Active Substance: CARBOPLATIN
     Dosage: 676 MILLIGRAM
     Route: 042
     Dates: start: 20190614, end: 20190614
  28. FLUOXETINE HYDROCHLORIDE. [Concomitant]
     Active Substance: FLUOXETINE HYDROCHLORIDE
     Dosage: 40 MILLIGRAM
     Route: 048
     Dates: start: 201904
  29. METOPROLOL. [Concomitant]
     Active Substance: METOPROLOL
     Indication: HYPERTENSION
     Dosage: 50 MILLIGRAM
     Route: 048
     Dates: start: 20190712, end: 20191026
  30. HYDROCODONE [Concomitant]
     Active Substance: HYDROCODONE
     Indication: PAIN
     Dosage: 15 MILLIGRAM
     Route: 048
     Dates: start: 20190510
  31. PROMETHAZINE [Concomitant]
     Active Substance: PROMETHAZINE HYDROCHLORIDE
     Indication: NAUSEA
     Dosage: 50 MILLIGRAM
     Route: 048
     Dates: start: 20190524
  32. MIRALAX [Concomitant]
     Active Substance: POLYETHYLENE GLYCOL 3350
     Indication: CONSTIPATION
     Route: 048
     Dates: start: 20190722
  33. ABRAXANE [Suspect]
     Active Substance: PACLITAXEL
     Dosage: 204 MILLIGRAM
     Route: 042
     Dates: start: 20190607, end: 20190607
  34. DURVALUMAB. [Suspect]
     Active Substance: DURVALUMAB
     Dosage: 1500 MILLIGRAM
     Route: 042
     Dates: start: 20190614, end: 20190614
  35. DURVALUMAB. [Suspect]
     Active Substance: DURVALUMAB
     Dosage: 1500 MILLIGRAM
     Route: 042
     Dates: start: 20190816, end: 20190816
  36. CARBOPLATIN. [Suspect]
     Active Substance: CARBOPLATIN
     Dosage: 734 MILLIGRAM
     Route: 042
     Dates: start: 20190710, end: 20190710
  37. CARBOPLATIN. [Suspect]
     Active Substance: CARBOPLATIN
     Dosage: 790 MILLIGRAM
     Route: 042
     Dates: start: 20190816, end: 20190816
  38. FLUOXETINE HYDROCHLORIDE. [Concomitant]
     Active Substance: FLUOXETINE HYDROCHLORIDE
     Indication: DEPRESSION
     Dosage: 20 MILLIGRAM
     Route: 048
     Dates: start: 20070124
  39. LISINOPRIL. [Concomitant]
     Active Substance: LISINOPRIL
     Indication: HYPERTENSION
     Dosage: 20 MILLIGRAM
     Route: 048
     Dates: start: 20070124, end: 20191026
  40. ACETAMINOPHEN. [Concomitant]
     Active Substance: ACETAMINOPHEN
     Indication: PAIN
     Dosage: 1300 MILLIGRAM
     Route: 048
     Dates: start: 20190510
  41. DURVALUMAB. [Suspect]
     Active Substance: DURVALUMAB
     Dosage: 1500 MILLIGRAM
     Route: 042
     Dates: start: 20190710, end: 20190710
  42. DURVALUMAB. [Suspect]
     Active Substance: DURVALUMAB
     Dosage: 1500 MILLIGRAM
     Route: 042
     Dates: start: 20191004, end: 20191004
  43. PROTONIX [Concomitant]
     Active Substance: PANTOPRAZOLE SODIUM
     Indication: GASTROOESOPHAGEAL REFLUX DISEASE
     Dosage: 40 MILLIGRAM
     Route: 048
     Dates: start: 20190625
  44. DEXAMETHASONE. [Concomitant]
     Active Substance: DEXAMETHASONE
     Indication: PROPHYLAXIS OF NAUSEA AND VOMITING
     Dosage: .2857 MILLIGRAM
     Route: 042
     Dates: start: 20190524, end: 20191230

REACTIONS (1)
  - Diabetic ketoacidosis [Recovered/Resolved]

NARRATIVE: CASE EVENT DATE: 20191026
